FAERS Safety Report 6968990-0 (Version None)
Quarter: 2010Q3

REPORT INFORMATION
  Report Type: 
  Country: None (occurrence: None)
  Receive Date: 20100907
  Receipt Date: 20100903
  Transmission Date: 20110219
  Serious: Yes (Death)
  Sender: FDA-Public Use
  Company Number: CHPA2010GB13592

PATIENT
  Age: 25 Year
  Sex: Female
  Weight: 48 kg

DRUGS (9)
  1. IBUPROFEN (NCH) [Suspect]
     Dosage: UNK, UNK
     Route: 048
     Dates: start: 20081209, end: 20081209
  2. TEMAZEPAM (NGX) [Suspect]
     Dosage: UNK, UNK
     Route: 048
     Dates: start: 20081209, end: 20081209
  3. FLUOXETINE [Suspect]
     Dosage: UNK, UNK
     Route: 048
     Dates: start: 20081209, end: 20081209
  4. NORTRIPTYLINE HCL [Suspect]
     Dosage: UNK, UNK
     Route: 048
     Dates: start: 20081209, end: 20081209
  5. OXAZEPAM [Suspect]
     Dosage: UNK, UNK
     Route: 048
     Dates: start: 20081209, end: 20081209
  6. CIPRALEX                                /DEN/ [Suspect]
     Indication: ANXIETY
     Dosage: 10 MG, QD
     Route: 048
     Dates: start: 20080301, end: 20080701
  7. CIPRALEX                                /DEN/ [Suspect]
     Indication: DEPRESSION
     Dosage: 10 MG, QD
     Route: 048
     Dates: start: 20081203, end: 20081209
  8. CIPRALEX                                /DEN/ [Suspect]
     Dosage: 220 MG, ONCE/SINGLE
     Route: 048
     Dates: start: 20081209, end: 20081209
  9. ALCOHOL [Suspect]
     Dosage: UNK, UNK
     Route: 048
     Dates: start: 20081209, end: 20081209

REACTIONS (2)
  - COMPLETED SUICIDE [None]
  - INTENTIONAL OVERDOSE [None]
